FAERS Safety Report 4596177-8 (Version None)
Quarter: 2005Q1

REPORT INFORMATION
  Report Type: 
  Country: None (occurrence: None)
  Receive Date: 20050225
  Receipt Date: 20050209
  Transmission Date: 20050727
  Serious: Yes (Hospitalization, Disabling)
  Sender: FDA-Public Use
  Company Number: 2005-SW-00063DB

PATIENT
  Age: 84 Year
  Sex: Female

DRUGS (1)
  1. PERSANTINE [Suspect]
     Indication: CARDIAC PHARMACOLOGIC STRESS TEST
     Dosage: UNIT FOR STRENGTH IS MG/ML (5 SEE TEXT,) IV
     Route: 042
     Dates: start: 20050120, end: 20050120

REACTIONS (5)
  - ATRIAL FIBRILLATION [None]
  - BUNDLE BRANCH BLOCK LEFT [None]
  - DIZZINESS [None]
  - MYOCARDIAL INFARCTION [None]
  - NAUSEA [None]
